FAERS Safety Report 9069539 (Version 2)
Quarter: 2013Q1

REPORT INFORMATION
  Report Type: Report from Study
  Country: US (occurrence: US)
  Receive Date: 20130215
  Receipt Date: 20130314
  Transmission Date: 20140127
  Serious: Yes (Other)
  Sender: FDA-Public Use
  Company Number: US-US-EMD SERONO, INC.-7192985

PATIENT
  Age: 28 None
  Sex: Female
  Weight: 72 kg

DRUGS (2)
  1. REBIF [Suspect]
     Indication: RELAPSING-REMITTING MULTIPLE SCLEROSIS
     Route: 058
     Dates: start: 20130117, end: 20130205
  2. NEURONTIN [Concomitant]
     Indication: NEURALGIA
     Route: 048
     Dates: start: 20130109

REACTIONS (4)
  - Neuromyelitis optica [Unknown]
  - Asthenia [Recovered/Resolved]
  - Fatigue [Recovered/Resolved]
  - Influenza like illness [Recovered/Resolved]
